FAERS Safety Report 21171748 (Version 1)
Quarter: 2022Q3

REPORT INFORMATION
  Report Type: Spontaneous
  Country: US (occurrence: US)
  Receive Date: 20220804
  Receipt Date: 20220804
  Transmission Date: 20221027
  Serious: No
  Sender: FDA-Public Use
  Company Number: US-BRISTOL-MYERS SQUIBB COMPANY-2022-082778

PATIENT
  Age: 82 Year
  Sex: Female

DRUGS (4)
  1. ELIQUIS [Suspect]
     Active Substance: APIXABAN
     Indication: Deep vein thrombosis
     Dosage: THERE WAS CONFUSION FOR THE FIRST MONTH OF HER TAKING HER APIXABAN BECAUSE SHE HAD TAKEN TWICE THE D
     Route: 048
     Dates: start: 20220503
  2. ELIQUIS [Suspect]
     Active Substance: APIXABAN
     Route: 048
     Dates: start: 2022
  3. SYNTHROID [Concomitant]
     Active Substance: LEVOTHYROXINE SODIUM
     Indication: Product used for unknown indication
     Route: 065
  4. TRAZODONE [Concomitant]
     Active Substance: TRAZODONE HYDROCHLORIDE
     Indication: Product used for unknown indication
     Dosage: HALF OF TRAZODONE EVERY EVENING
     Route: 065

REACTIONS (3)
  - Product temperature excursion issue [Unknown]
  - Treatment noncompliance [Unknown]
  - Arthritis [Unknown]

NARRATIVE: CASE EVENT DATE: 20220617
